FAERS Safety Report 7156055-7 (Version None)
Quarter: 2010Q4

REPORT INFORMATION
  Report Type: 
  Country: None (occurrence: None)
  Receive Date: 20101123
  Receipt Date: 20100803
  Transmission Date: 20110411
  Serious: Yes (Other)
  Sender: FDA-Public Use
  Company Number: 015680

PATIENT
  Sex: Male

DRUGS (1)
  1. CIMZIA [Suspect]
     Indication: CROHN'S DISEASE
     Dosage: 400 MG 1X/2 WEEKS, HAD PREFILLED SYRINGE INSTEAD OF LYOPHILIZED ONE. SUBCUTANEOUS
     Route: 058
     Dates: start: 20100714

REACTIONS (2)
  - ABDOMINAL PAIN UPPER [None]
  - INJECTION SITE PAIN [None]
